FAERS Safety Report 24718085 (Version 1)
Quarter: 2024Q4

REPORT INFORMATION
  Report Type: Spontaneous
  Country: US (occurrence: None)
  Receive Date: 20241209
  Receipt Date: 20241209
  Transmission Date: 20250115
  Serious: Yes (Hospitalization, Other)
  Sender: Public
  Company Number: None

PATIENT
  Age: 59 Year
  Sex: Female
  Weight: 166.5 kg

DRUGS (9)
  1. TIRZEPATIDE [Suspect]
     Active Substance: TIRZEPATIDE
     Indication: Weight decreased
     Dosage: OTHER QUANTITY : 1 INJECTION(S);?OTHER FREQUENCY : ONCE WEEKLY;?
     Route: 058
     Dates: start: 20241130, end: 20241130
  2. FUROSEMIDE [Concomitant]
     Active Substance: FUROSEMIDE
  3. ROSUVASTATIN [Concomitant]
     Active Substance: ROSUVASTATIN
  4. HYDROCHLOROTHIAZIDE [Concomitant]
     Active Substance: HYDROCHLOROTHIAZIDE
  5. LOSARTAN [Concomitant]
     Active Substance: LOSARTAN
  6. DEXAMETHASONE [Concomitant]
     Active Substance: DEXAMETHASONE
  7. PLAQUENIL [Concomitant]
     Active Substance: HYDROXYCHLOROQUINE SULFATE
  8. VITAMINS [Concomitant]
     Active Substance: VITAMINS
  9. IBUPROFEN [Concomitant]
     Active Substance: IBUPROFEN

REACTIONS (10)
  - Insomnia [None]
  - Pressure of speech [None]
  - Logorrhoea [None]
  - Hypophagia [None]
  - Dysgraphia [None]
  - Aphasia [None]
  - Crying [None]
  - Chest discomfort [None]
  - Dyspnoea [None]
  - Therapy cessation [None]

NARRATIVE: CASE EVENT DATE: 20241201
